FAERS Safety Report 26010962 (Version 1)
Quarter: 2025Q4

REPORT INFORMATION
  Report Type: Spontaneous
  Country: JP (occurrence: JP)
  Receive Date: 20251107
  Receipt Date: 20251107
  Transmission Date: 20260117
  Serious: No
  Sender: UCB
  Company Number: JP-UCBJ-CD202513516UCBPHAPROD

PATIENT
  Age: 5 Decade

DRUGS (1)
  1. FINTEPLA [Suspect]
     Active Substance: FENFLURAMINE
     Indication: Lennox-Gastaut syndrome
     Dosage: 0.05 MILLIGRAM/KILOGRAM PER DAY

REACTIONS (3)
  - Gait disturbance [Recovered/Resolved]
  - Prescribed underdose [Unknown]
  - Off label use [Unknown]
